FAERS Safety Report 7991272-5 (Version None)
Quarter: 2011Q4

REPORT INFORMATION
  Report Type: 
  Country: None (occurrence: None)
  Receive Date: 20111219
  Receipt Date: 20111214
  Transmission Date: 20120403
  Serious: Yes (Hospitalization, Other)
  Sender: FDA-Public Use
  Company Number: US-MERCK-1110USA02257

PATIENT
  Age: 72 Year
  Sex: Female

DRUGS (2)
  1. FOSAMAX [Suspect]
     Indication: OSTEOPENIA
     Route: 048
     Dates: start: 19981001, end: 20100901
  2. FOSAMAX PLUS D [Suspect]
     Indication: OSTEOPENIA
     Route: 048
     Dates: end: 20100901

REACTIONS (17)
  - INTERVERTEBRAL DISC DEGENERATION [None]
  - EYELID PTOSIS [None]
  - HYPERGLYCAEMIA [None]
  - SKIN HYPERPIGMENTATION [None]
  - ANAEMIA POSTOPERATIVE [None]
  - HYPERCHOLESTEROLAEMIA [None]
  - URINARY TRACT INFECTION [None]
  - TENDONITIS [None]
  - OSTEOPOROSIS [None]
  - FRACTURE DELAYED UNION [None]
  - HYPERTONIC BLADDER [None]
  - HYPERTENSION [None]
  - FEMUR FRACTURE [None]
  - BREAST CANCER [None]
  - URGE INCONTINENCE [None]
  - DRUG INEFFECTIVE [None]
  - HYPOTHYROIDISM [None]
